FAERS Safety Report 19433975 (Version 1)
Quarter: 2021Q2

REPORT INFORMATION
  Report Type: Spontaneous
  Country: US (occurrence: US)
  Receive Date: 20210617
  Receipt Date: 20210617
  Transmission Date: 20210717
  Serious: Yes (Other)
  Sender: FDA-Public Use
  Company Number: US-ROCHE-2635501

PATIENT
  Sex: Female

DRUGS (2)
  1. ACTEMRA [Suspect]
     Active Substance: TOCILIZUMAB
     Indication: RHEUMATOID ARTHRITIS
     Dosage: 8 MG PER KG EVERY 4 WEEKS INTRAVENOUSLY
     Route: 042
     Dates: start: 20171214
  2. ACTEMRA [Suspect]
     Active Substance: TOCILIZUMAB
     Dosage: 8MG KG EVERY 4 WEEKS INTRAVENOUSLY
     Route: 042
     Dates: start: 20171214

REACTIONS (1)
  - Herpes zoster [Unknown]
